FAERS Safety Report 12071443 (Version 1)
Quarter: 2016Q1

REPORT INFORMATION
  Report Type: Not Available
  Country: US (occurrence: US)
  Receive Date: 20160211
  Receipt Date: 20160211
  Transmission Date: 20160526
  Serious: No
  Sender: FDA-Public Use
  Company Number: US-ANIPHARMA-2015-US-001136

PATIENT
  Age: 73 Year
  Sex: Male
  Weight: 104.33 kg

DRUGS (7)
  1. REGLAN [Suspect]
     Active Substance: METOCLOPRAMIDE HYDROCHLORIDE
     Dosage: 4 TABS DAILY
     Route: 048
     Dates: start: 201504, end: 201504
  2. HUMULIN NOS [Concomitant]
     Active Substance: INSULIN HUMAN
  3. CENTRUM [Concomitant]
     Active Substance: VITAMINS
  4. SYNTHROID [Concomitant]
     Active Substance: LEVOTHYROXINE SODIUM
  5. TOPROL XL [Concomitant]
     Active Substance: METOPROLOL SUCCINATE
  6. NEURONTIN [Concomitant]
     Active Substance: GABAPENTIN
  7. ASPIRIN. [Concomitant]
     Active Substance: ASPIRIN

REACTIONS (1)
  - Dyspnoea [Unknown]
